FAERS Safety Report 23978656 (Version 1)
Quarter: 2024Q2

REPORT INFORMATION
  Report Type: Spontaneous
  Country: US (occurrence: None)
  Receive Date: 20240614
  Receipt Date: 20240614
  Transmission Date: 20240716
  Serious: No
  Sender: FDA-Public Use
  Company Number: 2024A126676

PATIENT
  Sex: Female

DRUGS (1)
  1. FASENRA [Suspect]
     Active Substance: BENRALIZUMAB
     Dosage: 30MG/ML
     Route: 058
     Dates: start: 2022

REACTIONS (8)
  - Injection site indentation [Unknown]
  - Memory impairment [Unknown]
  - Dyspnoea [Unknown]
  - Condition aggravated [Unknown]
  - Seasonal allergy [Unknown]
  - Drug dose omission by device [Unknown]
  - Wrong technique in device usage process [Unknown]
  - Device leakage [Unknown]
